FAERS Safety Report 9114068 (Version 1)
Quarter: 2013Q1

REPORT INFORMATION
  Report Type: Spontaneous
  Country: US (occurrence: None)
  Receive Date: 20130220
  Receipt Date: 20130220
  Transmission Date: 20140127
  Serious: Yes (Other)
  Sender: FDA-Public Use
  Company Number: None

PATIENT
  Age: 60 Year
  Sex: Male
  Weight: 69.3 kg

DRUGS (1)
  1. METOPROLOL [Suspect]
     Indication: HYPERTENSION
     Route: 048
     Dates: start: 20120831, end: 20120917

REACTIONS (6)
  - Bradycardia [None]
  - Headache [None]
  - Aphagia [None]
  - Vomiting [None]
  - Hypersomnia [None]
  - Cold sweat [None]
